FAERS Safety Report 7475708-4 (Version None)
Quarter: 2011Q2

REPORT INFORMATION
  Report Type: 
  Country: None (occurrence: None)
  Receive Date: 20110512
  Receipt Date: 20110502
  Transmission Date: 20111010
  Serious: Yes (Hospitalization, Other)
  Sender: FDA-Public Use
  Company Number: US-ELI_LILLY_AND_COMPANY-US201105001025

PATIENT
  Sex: Male

DRUGS (4)
  1. HUMALOG [Suspect]
     Dosage: UNK, PRN
     Dates: end: 20100401
  2. LANTUS [Concomitant]
     Dosage: 20 U, BID
  3. HUMALOG [Suspect]
     Indication: DIABETES MELLITUS
     Dosage: UNK, PRN
     Dates: start: 20100401
  4. VICTOZA [Concomitant]
     Dosage: UNK, QD

REACTIONS (7)
  - RENAL TRANSPLANT [None]
  - STERNAL FRACTURE [None]
  - EXPIRED DRUG ADMINISTERED [None]
  - DEPRESSED LEVEL OF CONSCIOUSNESS [None]
  - MEMORY IMPAIRMENT [None]
  - STAPHYLOCOCCAL INFECTION [None]
  - MYOCARDIAL INFARCTION [None]
